FAERS Safety Report 6547761-3 (Version None)
Quarter: 2010Q1

REPORT INFORMATION
  Report Type: 
  Country: None (occurrence: None)
  Receive Date: 20100124
  Receipt Date: 20091021
  Transmission Date: 20100710
  Serious: No
  Sender: FDA-Public Use
  Company Number: CA-ALEXION-A200900865

PATIENT
  Sex: Female

DRUGS (18)
  1. SOLIRIS [Suspect]
     Indication: PAROXYSMAL NOCTURNAL HAEMOGLOBINURIA
     Dosage: 600 MG, WEEKLY FOR 4 WEEKS
     Route: 042
     Dates: start: 20091020, end: 20091110
  2. SOLIRIS [Suspect]
     Dosage: 900 MG, EVERY 2 WEEKS
     Route: 042
     Dates: start: 20091117
  3. FOLIC ACID [Concomitant]
     Dosage: 5 MG, UNK
     Route: 048
  4. PANTOZOL                           /01263202/ [Concomitant]
     Dosage: 40 MG, UNK
     Route: 048
  5. CALCIUM [Concomitant]
     Dosage: 333 MG, TID
     Route: 048
  6. PENTASA [Concomitant]
     Dosage: 500 MG, UNK
     Route: 048
  7. CIPRALEX                           /01588501/ [Concomitant]
     Dosage: 20 MG, UNK
     Route: 048
  8. TYLENOL (CAPLET) [Concomitant]
     Dosage: 30 MG, 2 PRN
     Route: 048
  9. IMOVANE [Concomitant]
     Dosage: 7.5 MG, UNK
     Route: 048
  10. PREDNISONE [Concomitant]
     Dosage: 5 MG, UNK
     Route: 048
  11. NITRO                              /00003201/ [Concomitant]
     Dosage: 40 MG, UNK
     Route: 062
  12. ACTONEL [Concomitant]
     Dosage: 1 X WEEK
     Route: 048
  13. VITAMIN A [Concomitant]
     Dosage: 1000 IU, UNK
     Route: 048
  14. BISOPROLOL FUMARATE [Concomitant]
     Dosage: 5 MG, UNK
     Route: 048
  15. CLONAZEPAM [Concomitant]
     Dosage: 5 MG, UNK
     Route: 048
  16. COUMADIN [Concomitant]
     Dosage: 5 MG, UNK
     Route: 048
  17. RAMIPRIL [Concomitant]
     Dosage: 10 MG, UNK
     Route: 048
  18. LIPITOR [Concomitant]
     Dosage: 20 MG, UNK
     Route: 048

REACTIONS (3)
  - DIZZINESS [None]
  - HEADACHE [None]
  - RHINORRHOEA [None]
